FAERS Safety Report 8683350 (Version 2)
Quarter: 2013Q4

REPORT INFORMATION
  Report Type: Spontaneous
  Country: US (occurrence: US)
  Receive Date: 20120726
  Receipt Date: 20131101
  Transmission Date: 20140711
  Serious: No
  Sender: FDA-Public Use
  Company Number: US-009507513-2012SP036709

PATIENT
  Sex: 0

DRUGS (1)
  1. SAPHRIS [Suspect]
     Dosage: 5 TO 20 MG, RAPID DISSOLVE 10

REACTIONS (4)
  - Somnambulism [Unknown]
  - Binge eating [Unknown]
  - Sedation [Unknown]
  - Psychomotor hyperactivity [Unknown]
